FAERS Safety Report 8124585-7 (Version None)
Quarter: 2012Q1

REPORT INFORMATION
  Report Type: 
  Country: None (occurrence: None)
  Receive Date: 20120209
  Receipt Date: 20120208
  Transmission Date: 20120608
  Serious: Yes (Hospitalization, Other)
  Sender: FDA-Public Use
  Company Number: US-BAYER-2012-012641

PATIENT
  Age: 50 Year
  Sex: Female

DRUGS (4)
  1. BETASERON [Suspect]
     Indication: MULTIPLE SCLEROSIS
     Dosage: UNK
     Dates: start: 20030227, end: 20061020
  2. BETASERON [Suspect]
     Dosage: 8 MIU, QOD
     Route: 058
     Dates: start: 20120206
  3. BETASERON [Suspect]
     Dosage: UNK
     Dates: start: 20070420, end: 20090910
  4. BETASERON [Suspect]
     Dosage: UNK
     Dates: start: 20091002, end: 20111201

REACTIONS (3)
  - APHASIA [None]
  - SPEECH DISORDER [None]
  - LETHARGY [None]
